FAERS Safety Report 6188026-1 (Version None)
Quarter: 2009Q2

REPORT INFORMATION
  Report Type: 
  Country: None (occurrence: None)
  Receive Date: 20090513
  Receipt Date: 20090505
  Transmission Date: 20091009
  Serious: Yes (Hospitalization, Other)
  Sender: FDA-Public Use
  Company Number: PHEH2007US14407

PATIENT
  Sex: Female

DRUGS (19)
  1. AREDIA [Suspect]
     Indication: OSTEOPOROSIS
     Dosage: UNK, Q 4 WEEKS
  2. STEROIDS NOS [Concomitant]
  3. METHADONE HCL [Concomitant]
  4. DILAUDID [Concomitant]
  5. BENADRYL [Concomitant]
  6. PHENERGAN ^AVENTIS PHARMA^ [Concomitant]
  7. PREDNISOLONE [Concomitant]
  8. ACCOLATE [Concomitant]
  9. ACIPHEX [Concomitant]
  10. ATARAX [Concomitant]
  11. ZETIA [Concomitant]
  12. HUMALOG [Concomitant]
  13. LANTUS [Concomitant]
  14. NORVASC [Concomitant]
  15. CARAFATE [Concomitant]
  16. ATIVAN [Concomitant]
  17. ZOFRAN [Concomitant]
  18. DIOVAN [Concomitant]
  19. ZYRTEC [Concomitant]

REACTIONS (39)
  - AMNESIA [None]
  - ANAPHYLACTIC REACTION [None]
  - ANHEDONIA [None]
  - ANOREXIA [None]
  - ANXIETY [None]
  - ARTHRALGIA [None]
  - BACK PAIN [None]
  - BONE DEBRIDEMENT [None]
  - BONE DISORDER [None]
  - CHEST PAIN [None]
  - CHOLECYSTECTOMY [None]
  - DEAFNESS [None]
  - DENTAL CARIES [None]
  - DEPRESSION [None]
  - DIZZINESS [None]
  - DYSPHAGIA [None]
  - DYSPNOEA [None]
  - ENDODONTIC PROCEDURE [None]
  - GINGIVAL ERYTHEMA [None]
  - GINGIVAL OEDEMA [None]
  - GINGIVAL PAIN [None]
  - GINGIVITIS [None]
  - HYPERBARIC OXYGEN THERAPY [None]
  - IMPAIRED HEALING [None]
  - INJURY [None]
  - MASTOCYTOSIS [None]
  - MUSCULAR WEAKNESS [None]
  - MYALGIA [None]
  - OSTEONECROSIS [None]
  - PAIN [None]
  - PAIN IN JAW [None]
  - PALPITATIONS [None]
  - POOR DENTAL CONDITION [None]
  - PRIMARY SEQUESTRUM [None]
  - SEPSIS [None]
  - SWELLING [None]
  - TOOTH EXTRACTION [None]
  - URINARY RETENTION [None]
  - WEIGHT DECREASED [None]
